FAERS Safety Report 22332737 (Version 1)
Quarter: 2023Q2

REPORT INFORMATION
  Report Type: Report from Study
  Country: AU (occurrence: None)
  Receive Date: 20230517
  Receipt Date: 20230517
  Transmission Date: 20230722
  Serious: Yes (Hospitalization)
  Sender: FDA-Public Use
  Company Number: AU-Merck Healthcare KGaA-9401968

PATIENT
  Sex: Female

DRUGS (1)
  1. MAVENCLAD [Suspect]
     Active Substance: CLADRIBINE
     Indication: Multiple sclerosis
     Dosage: YEAR ONE WEEK ONE THERAPY.
     Route: 048
     Dates: start: 20230306, end: 20230310

REACTIONS (5)
  - Hypotension [Unknown]
  - Throat irritation [Unknown]
  - Rhinorrhoea [Unknown]
  - Lymphocyte count decreased [Unknown]
  - Exposure to SARS-CoV-2 [Unknown]
